FAERS Safety Report 5387789-2 (Version None)
Quarter: 2007Q3

REPORT INFORMATION
  Report Type: 
  Country: None (occurrence: None)
  Receive Date: 20070712
  Receipt Date: 20070712
  Transmission Date: 20080115
  Serious: Yes (Other)
  Sender: FDA-Public Use
  Company Number: None

PATIENT
  Age: 56 Year
  Sex: Male
  Weight: 95.2554 kg

DRUGS (1)
  1. BYETTA [Suspect]
     Indication: DIABETES MELLITUS
     Dosage: 10 MCG BID SQ
     Route: 058
     Dates: start: 20070204, end: 20070711

REACTIONS (5)
  - BLOOD GLUCOSE INCREASED [None]
  - DEVICE FAILURE [None]
  - INCORRECT DOSE ADMINISTERED [None]
  - PHARMACEUTICAL PRODUCT COMPLAINT [None]
  - TREATMENT NONCOMPLIANCE [None]
